FAERS Safety Report 24993798 (Version 1)
Quarter: 2025Q1

REPORT INFORMATION
  Report Type: Spontaneous
  Country: RU (occurrence: RU)
  Receive Date: 20250221
  Receipt Date: 20250221
  Transmission Date: 20250409
  Serious: Yes (Other)
  Sender: TEVA
  Company Number: RU-TEVA-VS-3299794

PATIENT
  Age: 63 Year
  Sex: Female

DRUGS (2)
  1. BECLOMETHASONE [Suspect]
     Active Substance: BECLOMETHASONE
     Indication: Asthma
     Route: 055
  2. FORMOTEROL [Concomitant]
     Active Substance: FORMOTEROL
     Indication: Product used for unknown indication

REACTIONS (6)
  - Asthma [Unknown]
  - Device delivery system issue [Unknown]
  - Wheezing [Unknown]
  - Dyspnoea [Unknown]
  - Drug dose omission by device [Unknown]
  - Product cleaning inadequate [Unknown]
